FAERS Safety Report 5961799-6 (Version None)
Quarter: 2008Q4

REPORT INFORMATION
  Report Type: 
  Country: None (occurrence: None)
  Receive Date: 20081121
  Receipt Date: 20081110
  Transmission Date: 20090506
  Serious: Yes (Hospitalization)
  Sender: FDA-Public Use
  Company Number: DE-ELI_LILLY_AND_COMPANY-DE200811001860

PATIENT
  Age: 50 Year
  Sex: Female

DRUGS (11)
  1. ZYPREXA [Suspect]
     Indication: BIPOLAR I DISORDER
     Dosage: 10 MG, UNK
     Route: 048
     Dates: start: 20080428, end: 20080530
  2. ORFIRIL LONG [Concomitant]
     Indication: BIPOLAR I DISORDER
     Dosage: 500 MG, UNK
     Route: 048
     Dates: start: 20080129, end: 20080410
  3. ORFIRIL LONG [Concomitant]
     Dosage: 800 MG, UNK
     Route: 048
     Dates: start: 20080411, end: 20080417
  4. ORFIRIL LONG [Concomitant]
     Dosage: 1500 MG, UNK
     Route: 048
     Dates: start: 20080418, end: 20080421
  5. ORFIRIL LONG [Concomitant]
     Dosage: 2000 MG, UNK
     Route: 048
     Dates: start: 20080422, end: 20080424
  6. ORFIRIL LONG [Concomitant]
     Dosage: 2500 MG, UNK
     Route: 048
     Dates: start: 20080425, end: 20080606
  7. ORFIRIL LONG [Concomitant]
     Dosage: 2000 MG, UNK
     Route: 048
     Dates: start: 20080607, end: 20080620
  8. ORFIRIL LONG [Concomitant]
     Dosage: 1500 MG, UNK
     Route: 048
     Dates: start: 20080621, end: 20080624
  9. ORFIRIL LONG [Concomitant]
     Dosage: 1000 MG, UNK
     Route: 048
     Dates: start: 20080625, end: 20080722
  10. DIAZEPAM [Concomitant]
     Indication: BIPOLAR I DISORDER
     Dosage: 10 MG, UNK
     Route: 048
     Dates: start: 20080417, end: 20080530
  11. ZOPICLON [Concomitant]
     Indication: BIPOLAR I DISORDER
     Dosage: 15 MG, UNK
     Route: 048
     Dates: start: 20080417, end: 20080808

REACTIONS (2)
  - HEPATIC ENZYME INCREASED [None]
  - PLATELET COUNT DECREASED [None]
